FAERS Safety Report 9160589 (Version 2)
Quarter: 2013Q1

REPORT INFORMATION
  Report Type: Spontaneous
  Country: US (occurrence: US)
  Receive Date: 20130313
  Receipt Date: 20130329
  Transmission Date: 20140127
  Serious: Yes (Life-Threatening, Hospitalization, Other)
  Sender: FDA-Public Use
  Company Number: US-ASTRAZENECA-2013SE16316

PATIENT
  Age: 320 Month
  Sex: Male
  Weight: 95.3 kg

DRUGS (7)
  1. SEROQUEL XR [Suspect]
     Indication: BIPOLAR DISORDER
     Route: 048
  2. SEROQUEL XR [Suspect]
     Indication: BIPOLAR DISORDER
     Dosage: PATIENT RECIEVED 6 PACKAGES OF 50 MG AND 1 BOTTLE 200 MG OF SEROQUEL XR
     Route: 048
     Dates: start: 2013
  3. SEROQUEL XR [Suspect]
     Indication: BIPOLAR DISORDER
     Route: 048
  4. SEROQUEL XR [Suspect]
     Indication: BIPOLAR DISORDER
     Route: 048
     Dates: start: 20130122
  5. IBUPROFEN [Suspect]
     Dosage: PATIENT TOOK BOTTLE OF IBUPROFEN
     Route: 065
  6. COCAINE [Concomitant]
  7. ALCOHOL [Concomitant]

REACTIONS (4)
  - Overdose [Unknown]
  - Electrocardiogram QT prolonged [Unknown]
  - Coma [Unknown]
  - Intentional drug misuse [Unknown]
